FAERS Safety Report 8381257-1 (Version None)
Quarter: 2012Q2

REPORT INFORMATION
  Report Type: 
  Country: None (occurrence: None)
  Receive Date: 20120522
  Receipt Date: 20120508
  Transmission Date: 20120825
  Serious: Yes (Life-Threatening, Hospitalization, Other)
  Sender: FDA-Public Use
  Company Number: FK201201364

PATIENT
  Age: 39 Year
  Sex: Male

DRUGS (2)
  1. GEMCITABINE [Concomitant]
  2. CISPLATIN [Suspect]
     Indication: URETHRAL CANCER METASTATIC

REACTIONS (5)
  - DISEASE PROGRESSION [None]
  - URETHRAL CANCER [None]
  - ANAPHYLACTIC SHOCK [None]
  - RASH [None]
  - DEEP VEIN THROMBOSIS [None]
